FAERS Safety Report 9215327 (Version 1)
Quarter: 2013Q2

REPORT INFORMATION
  Report Type: Report from Study
  Country: VE (occurrence: VE)
  Receive Date: 20130405
  Receipt Date: 20130405
  Transmission Date: 20140414
  Serious: Yes (Hospitalization)
  Sender: FDA-Public Use
  Company Number: VE-ABBOTT-13P-178-1071703-00

PATIENT
  Age: 69 Year
  Sex: Male
  Weight: 58 kg

DRUGS (5)
  1. HUMIRA [Suspect]
     Indication: PSORIASIS
     Route: 058
     Dates: start: 20100211, end: 201210
  2. HUMIRA [Suspect]
     Route: 058
     Dates: start: 20130325
  3. METHOTREXATE [Concomitant]
     Indication: PSORIASIS
     Dosage: DAILY
     Route: 048
     Dates: start: 201002
  4. LISILET [Concomitant]
     Indication: HYPERTENSION
     Dosage: VO
  5. ATORVASTATINA [Concomitant]
     Indication: HYPERTENSION
     Dosage: VO

REACTIONS (1)
  - Diabetic foot [Recovered/Resolved]
